FAERS Safety Report 4993218-0 (Version None)
Quarter: 2006Q1

REPORT INFORMATION
  Report Type: 
  Country: None (occurrence: None)
  Receive Date: 20060314
  Receipt Date: 20060126
  Transmission Date: 20060701
  Serious: Yes (Hospitalization)
  Sender: FDA-Public Use
  Company Number: BDI-007903

PATIENT
  Age: 53 Year
  Sex: Female

DRUGS (2)
  1. MULTIHANCE [Suspect]
     Indication: ANGIOGRAM
     Dosage: 20 ML ONCE IV
     Route: 042
     Dates: start: 20060118, end: 20060118
  2. MULTIHANCE [Suspect]
     Indication: ARTERIOGRAM CAROTID
     Dosage: 20 ML ONCE IV
     Route: 042
     Dates: start: 20060118, end: 20060118

REACTIONS (2)
  - EXTRAVASATION [None]
  - INJECTION SITE REACTION [None]
